FAERS Safety Report 6137269-1 (Version None)
Quarter: 2009Q1

REPORT INFORMATION
  Report Type: 
  Country: None (occurrence: None)
  Receive Date: 20090326
  Receipt Date: 20090326
  Transmission Date: 20090719
  Serious: No
  Sender: FDA-Public Use
  Company Number: None

PATIENT
  Age: 40 Year
  Sex: Female
  Weight: 64.4108 kg

DRUGS (1)
  1. HISTATAB [Suspect]
     Indication: SINUS CONGESTION
     Dosage: 12HR PO
     Route: 048
     Dates: start: 20090209, end: 20090210

REACTIONS (2)
  - BLOOD PRESSURE INCREASED [None]
  - TREMOR [None]
